FAERS Safety Report 7096209-1 (Version None)
Quarter: 2010Q4

REPORT INFORMATION
  Report Type: 
  Country: None (occurrence: None)
  Receive Date: 20101103
  Receipt Date: 20101019
  Transmission Date: 20110411
  Serious: Yes (Other)
  Sender: FDA-Public Use
  Company Number: JP-SOLVAY-00310006290

PATIENT
  Sex: Male

DRUGS (2)
  1. LUVOX [Suspect]
     Indication: PRODUCT USED FOR UNKNOWN INDICATION
     Dosage: 500 MILLIGRAM(S)
     Route: 048
     Dates: start: 20101001, end: 20101001
  2. JZOLOFT (SERTRALINE HYDROCHLORIDE) [Concomitant]

REACTIONS (3)
  - INTENTIONAL OVERDOSE [None]
  - MALAISE [None]
  - UNEVALUABLE EVENT [None]
